FAERS Safety Report 7139291-5 (Version None)
Quarter: 2010Q4

REPORT INFORMATION
  Report Type: 
  Country: None (occurrence: None)
  Receive Date: 20101206
  Receipt Date: 20101110
  Transmission Date: 20110411
  Serious: No
  Sender: FDA-Public Use
  Company Number: A0882167A

PATIENT
  Age: 16 Year
  Sex: Female
  Weight: 57.8 kg

DRUGS (1)
  1. LAMICTAL [Suspect]
     Dosage: 25MG UNKNOWN
     Route: 048
     Dates: end: 20100911

REACTIONS (6)
  - FATIGUE [None]
  - HOT FLUSH [None]
  - MUSCULOSKELETAL CHEST PAIN [None]
  - MYALGIA [None]
  - RASH [None]
  - RASH PRURITIC [None]
